FAERS Safety Report 5027812-8 (Version None)
Quarter: 2006Q2

REPORT INFORMATION
  Report Type: 
  Country: None (occurrence: None)
  Receive Date: 20060501
  Receipt Date: 20060228
  Transmission Date: 20061013
  Serious: Yes (Other)
  Sender: FDA-Public Use
  Company Number: 200520542US

PATIENT
  Age: 67 Year
  Sex: Male
  Weight: 83 kg

DRUGS (2)
  1. KETEK [Suspect]
     Indication: LUNG INFECTION
     Dosage: 800 MG ONCE PO
     Route: 048
     Dates: start: 20050101, end: 20050101
  2. AMOXICILLIN [Concomitant]

REACTIONS (3)
  - MALAISE [None]
  - VISION BLURRED [None]
  - VISUAL DISTURBANCE [None]
